FAERS Safety Report 6332608-0 (Version None)
Quarter: 2009Q3

REPORT INFORMATION
  Report Type: 
  Country: None (occurrence: None)
  Receive Date: 20090828
  Receipt Date: 20090805
  Transmission Date: 20100115
  Serious: No
  Sender: FDA-Public Use
  Company Number: FR-AVENTIS-200912778FR

PATIENT
  Sex: Female

DRUGS (2)
  1. ARAVA [Suspect]
     Indication: RHEUMATOID ARTHRITIS
     Route: 048
     Dates: start: 20070101, end: 20081201
  2. QUESTRAN [Concomitant]
     Route: 048
     Dates: start: 20090301

REACTIONS (1)
  - DRUG EXPOSURE DURING PREGNANCY [None]
